FAERS Safety Report 12173552 (Version 1)
Quarter: 2016Q1

REPORT INFORMATION
  Report Type: Spontaneous
  Country: DE (occurrence: DE)
  Receive Date: 20160311
  Receipt Date: 20160311
  Transmission Date: 20160526
  Serious: Yes (Hospitalization)
  Sender: FDA-Public Use
  Company Number: DE-GUERBET LLC-1048971

PATIENT
  Age: 50 Year
  Sex: Female
  Weight: 57.5 kg

DRUGS (4)
  1. TAVEGIL(CLEMASTINE FUMARATE) [Concomitant]
     Route: 042
     Dates: start: 20160222, end: 20160222
  2. DECORTIN(PREDNISONE) [Concomitant]
     Route: 048
  3. DOTAREM [Suspect]
     Active Substance: GADOTERATE MEGLUMINE
     Indication: NUCLEAR MAGNETIC RESONANCE IMAGING
     Route: 042
     Dates: start: 20160222, end: 20160222
  4. FENISTIL(DIMETINDENE MALEATE) [Concomitant]
     Route: 042

REACTIONS (6)
  - Dyspnoea [Recovered/Resolved]
  - Chills [Recovered/Resolved]
  - Restlessness [Recovered/Resolved]
  - Bronchospasm [Recovered/Resolved]
  - Pharyngeal oedema [Recovered/Resolved]
  - Contraindicated drug administered [Recovered/Resolved]

NARRATIVE: CASE EVENT DATE: 20160222
